FAERS Safety Report 6981008-9 (Version None)
Quarter: 2010Q3

REPORT INFORMATION
  Report Type: 
  Country: None (occurrence: None)
  Receive Date: 20100914
  Receipt Date: 20100903
  Transmission Date: 20110219
  Serious: Yes (Hospitalization)
  Sender: FDA-Public Use
  Company Number: B0674079A

PATIENT
  Sex: Male

DRUGS (1)
  1. ALLI [Suspect]
     Indication: PRODUCT USED FOR UNKNOWN INDICATION
     Dosage: 3CAP PER DAY
     Route: 065

REACTIONS (4)
  - ABDOMINAL PAIN [None]
  - CIRCULATORY COLLAPSE [None]
  - DEHYDRATION [None]
  - STEATORRHOEA [None]
